FAERS Safety Report 5963400-4 (Version None)
Quarter: 2008Q4

REPORT INFORMATION
  Report Type: 
  Country: None (occurrence: None)
  Receive Date: 20081124
  Receipt Date: 20081121
  Transmission Date: 20090506
  Serious: Yes (Other)
  Sender: FDA-Public Use
  Company Number: D0059565A

PATIENT
  Age: 40 Year
  Sex: Female

DRUGS (1)
  1. CEFUHEXAL [Suspect]
     Dosage: 500MG UNKNOWN
     Route: 048

REACTIONS (1)
  - ASTHMA [None]
